APPROVED DRUG PRODUCT: K+8
Active Ingredient: POTASSIUM CHLORIDE
Strength: 8MEQ
Dosage Form/Route: TABLET, EXTENDED RELEASE;ORAL
Application: A070998 | Product #001
Applicant: FUTURE PAK LTD
Approved: Jan 25, 1993 | RLD: No | RS: No | Type: DISCN